FAERS Safety Report 10261933 (Version 4)
Quarter: 2014Q3

REPORT INFORMATION
  Report Type: Spontaneous
  Country: US (occurrence: US)
  Receive Date: 20140626
  Receipt Date: 20140718
  Transmission Date: 20150326
  Serious: Yes (Hospitalization)
  Sender: FDA-Public Use
  Company Number: US-JNJFOC-20140615670

PATIENT
  Age: 35 Year
  Sex: Male
  Weight: 101.15 kg

DRUGS (6)
  1. XARELTO [Suspect]
     Active Substance: RIVAROXABAN
     Indication: THROMBOSIS PROPHYLAXIS
     Route: 048
     Dates: start: 20140508, end: 201405
  2. FLONASE [Concomitant]
     Active Substance: FLUTICASONE PROPIONATE
     Dosage: 50 MCG/INHALATION NASAL SPRAY, 1-2 SPRAYS EACH NOSTRIL AT NIGHT (HS)
     Route: 055
  3. HYDROCODONE/PARACETAMOL [Concomitant]
     Active Substance: ACETAMINOPHEN\HYDROCODONE BITARTRATE
     Indication: INTERVERTEBRAL DISC PROTRUSION
     Dosage: 10 MG-325 MG 1/2 P.O
     Route: 048
  4. ATENOLOL. [Concomitant]
     Active Substance: ATENOLOL
     Dosage: 1/2 BID
     Route: 048
  5. HYDROCHLOROTHIAZIDE. [Concomitant]
     Active Substance: HYDROCHLOROTHIAZIDE
     Indication: BLOOD PRESSURE
     Dosage: 25 MG ONCE IN THE MORNING
     Route: 048
  6. AMLODIPINE [Concomitant]
     Active Substance: AMLODIPINE BESYLATE
     Route: 048

REACTIONS (4)
  - Cerebrovascular accident [Recovered/Resolved with Sequelae]
  - Sinus tachycardia [Unknown]
  - Cerebral haemorrhage [Recovered/Resolved]
  - Chest pain [Unknown]

NARRATIVE: CASE EVENT DATE: 201405
